FAERS Safety Report 4812000-8 (Version None)
Quarter: 2005Q4

REPORT INFORMATION
  Report Type: 
  Country: None (occurrence: None)
  Receive Date: 20051028
  Receipt Date: 20051019
  Transmission Date: 20060501
  Serious: Yes (Other)
  Sender: FDA-Public Use
  Company Number: 2005UW15836

PATIENT
  Age: 43 Year
  Sex: Female
  Weight: 90.7 kg

DRUGS (4)
  1. NEXIUM [Suspect]
     Indication: BARRETT'S OESOPHAGUS
     Route: 048
     Dates: start: 20000101
  2. ZOLOFT [Concomitant]
  3. DARVOCET [Concomitant]
  4. BENICAR [Concomitant]

REACTIONS (5)
  - ARTHRITIS [None]
  - CATARACT [None]
  - DISABILITY [None]
  - FIBROMYALGIA [None]
  - OSTEOPOROSIS [None]
